FAERS Safety Report 23532259 (Version 2)
Quarter: 2024Q1

REPORT INFORMATION
  Report Type: Spontaneous
  Country: CZ (occurrence: CZ)
  Receive Date: 20240216
  Receipt Date: 20240304
  Transmission Date: 20240409
  Serious: Yes (Hospitalization, Other)
  Sender: FDA-Public Use
  Company Number: CZ-SSP-2022SA494852AA

PATIENT
  Age: 14 Year
  Sex: Female

DRUGS (5)
  1. ACETAMINOPHEN [Suspect]
     Active Substance: ACETAMINOPHEN
     Indication: Product used for unknown indication
     Dosage: DOSE DESCRIPTION : 6000 MG
     Route: 065
  2. IBUPROFEN [Suspect]
     Active Substance: IBUPROFEN
     Indication: Product used for unknown indication
     Dosage: DOSE DESCRIPTION : 400 MG?TOTAL DOSE 20 TABLETS (400 MG X 20)
     Route: 065
  3. XYZAL ALLERGY 24HR [Suspect]
     Active Substance: LEVOCETIRIZINE DIHYDROCHLORIDE
     Indication: Product used for unknown indication
     Dosage: DOSE DESCRIPTION : 10 MG?TOTAL DOSE 20 TABLETS (10 MG X 20)
     Route: 065
  4. PENICILLIN V POTASSIUM [Suspect]
     Active Substance: PENICILLIN V POTASSIUM
     Indication: Product used for unknown indication
     Dosage: DOSE DESCRIPTION : 1500 MG?TOTAL DOSE 20 TABLETS (1500 MG X 20)
     Route: 065
  5. ESCIN [Suspect]
     Active Substance: ESCIN
     Indication: Product used for unknown indication
     Dosage: DOSE DESCRIPTION : 20 MG?TOTAL DOSE 20 TABLETS (20 MG X 20)
     Route: 065

REACTIONS (2)
  - Intentional overdose [Unknown]
  - Suicide attempt [Unknown]

NARRATIVE: CASE EVENT DATE: 20200530
